FAERS Safety Report 7267876-4 (Version None)
Quarter: 2011Q1

REPORT INFORMATION
  Report Type: 
  Country: None (occurrence: None)
  Receive Date: 20110201
  Receipt Date: 20110124
  Transmission Date: 20110831
  Serious: Yes (Death, Other)
  Sender: FDA-Public Use
  Company Number: CA-ROCHE-755495

PATIENT
  Age: 25 Year
  Sex: Male

DRUGS (3)
  1. OSELTAMIVIR [Suspect]
     Indication: H1N1 INFLUENZA
     Route: 065
     Dates: start: 20090810, end: 20090820
  2. OSELTAMIVIR [Suspect]
     Route: 065
     Dates: start: 20090825, end: 20090918
  3. OSELTAMIVIR [Suspect]
     Route: 065
     Dates: start: 20090925, end: 20090927

REACTIONS (4)
  - INFLUENZA [None]
  - PATHOGEN RESISTANCE [None]
  - EPSTEIN-BARR VIRUS INFECTION [None]
  - DRUG INEFFECTIVE [None]
